FAERS Safety Report 10143300 (Version 2)
Quarter: 2014Q2

REPORT INFORMATION
  Report Type: Spontaneous
  Country: US (occurrence: US)
  Receive Date: 20140430
  Receipt Date: 20140528
  Transmission Date: 20141212
  Serious: Yes (Hospitalization)
  Sender: FDA-Public Use
  Company Number: US-B.I. PHARMACEUTICALS,INC./RIDGEFIELD-2014-BI-18430BP

PATIENT
  Age: 79 Year
  Sex: Male
  Weight: 101 kg

DRUGS (19)
  1. PRADAXA [Suspect]
     Indication: ATRIAL FIBRILLATION
     Dosage: 300 MG
     Route: 048
     Dates: start: 20130202, end: 20140418
  2. SOTALOL [Concomitant]
     Route: 065
  3. CARVEDILOL [Concomitant]
     Dosage: DOSE PER APPLICATION AND DAILY DOSE: 12.5 TABLET
     Route: 065
  4. FUROSEMIDE [Concomitant]
     Dosage: 80 MG
     Route: 065
  5. GLIPIZIDE [Concomitant]
     Dosage: 5 MG
     Route: 065
  6. ROPINIROLE [Concomitant]
     Dosage: 3 MG
     Route: 065
  7. MULTIVITAMIN LIQUID [Concomitant]
     Route: 065
  8. ISOSORBIDE DINITRATE [Concomitant]
     Dosage: 30 MG
     Route: 065
  9. NASONEX [Concomitant]
     Dosage: DOSE PER APPLICATION AND DAILY DOSE:  50 MCG/ACT 1 SPRAY IN EACH NOSTIRL
     Route: 065
  10. NITROQUICK [Concomitant]
     Route: 065
  11. OMEPRAZOLE [Concomitant]
     Dosage: 40 MG
     Route: 065
  12. OMEGA 3 [Concomitant]
     Dosage: DOSE PER APPLICATION AND DAILY DOSE: 1 CAPSULE
     Route: 065
  13. COLACE [Concomitant]
     Dosage: 300 MG
     Route: 065
  14. PRISTIQ [Concomitant]
     Dosage: 1.5 ANZ
     Route: 065
  15. MIRALAX [Concomitant]
     Route: 065
  16. ALLOPURINOL [Concomitant]
     Dosage: 2 ANZ
     Route: 065
  17. POTASSIUM CHLORIDE [Concomitant]
     Dosage: 10 MEQ
     Route: 065
  18. LIPITOR [Concomitant]
     Dosage: 20 MG
     Route: 065
  19. CYMBALTA [Concomitant]
     Dosage: 30 MG
     Route: 065

REACTIONS (3)
  - Small intestinal haemorrhage [Recovered/Resolved]
  - Dizziness [Unknown]
  - Hypertension [Unknown]
